FAERS Safety Report 7770243-8 (Version None)
Quarter: 2011Q3

REPORT INFORMATION
  Report Type: 
  Country: None (occurrence: None)
  Receive Date: 20110922
  Receipt Date: 20100823
  Transmission Date: 20111222
  Serious: No
  Sender: FDA-Public Use
  Company Number: US-ASTRAZENECA-2009SE14169

PATIENT
  Age: 57 Year
  Sex: Female

DRUGS (6)
  1. HYDROCORTAP [Concomitant]
     Indication: PAIN
     Dosage: 10.3 MG, TID
  2. SEROQUEL XR [Suspect]
     Route: 048
  3. AMBIEN [Concomitant]
     Indication: SLEEP DISORDER
  4. CLONAZEPAM [Concomitant]
     Indication: ANXIETY
  5. CARISOPRODOL [Concomitant]
     Indication: PAIN
     Dosage: TID
  6. SEROQUEL XR [Suspect]
     Route: 048
     Dates: start: 20090601, end: 20100601

REACTIONS (4)
  - TREMOR [None]
  - UPPER LIMB FRACTURE [None]
  - FALL [None]
  - DRUG DOSE OMISSION [None]
